FAERS Safety Report 8225246-6 (Version None)
Quarter: 2012Q1

REPORT INFORMATION
  Report Type: 
  Country: None (occurrence: None)
  Receive Date: 20120321
  Receipt Date: 20120319
  Transmission Date: 20120608
  Serious: Yes (Hospitalization)
  Sender: FDA-Public Use
  Company Number: JP-B.I. PHARMACEUTICALS,INC./RIDGEFIELD-2011-BP-23147NB

PATIENT
  Sex: Male

DRUGS (15)
  1. TASMOLIN [Concomitant]
     Dosage: 2 MG
     Route: 048
     Dates: end: 20110810
  2. TORSEMIDE [Concomitant]
     Dosage: 4 MG
     Route: 048
     Dates: end: 20110810
  3. PURSENNID [Concomitant]
     Dosage: 24 MG
     Route: 048
     Dates: end: 20110810
  4. SEROQUEL [Concomitant]
     Dosage: 25 MG
     Route: 048
     Dates: end: 20110810
  5. HALOPERIDOL [Concomitant]
     Dosage: 1.5 MG
     Route: 048
     Dates: end: 20110810
  6. VERAPAMIL HCL [Concomitant]
     Dosage: 240 MG
     Route: 048
     Dates: end: 20110810
  7. RABEPRAZOLE SODIUM [Concomitant]
     Dosage: 10 MG
     Route: 048
     Dates: end: 20110810
  8. MICARDIS [Concomitant]
     Dosage: 40 MG
     Route: 048
     Dates: end: 20110810
  9. PHENOBARBITAL TAB [Concomitant]
     Dosage: 1 G
     Route: 048
     Dates: end: 20110810
  10. MAGNESIUM OXIDE [Concomitant]
     Dosage: 1.5 G
     Route: 048
     Dates: end: 20110810
  11. DEPAKENE [Concomitant]
     Dosage: 400 MG
     Route: 048
     Dates: end: 20110810
  12. TEGRETOL [Concomitant]
     Dosage: 600 MG
     Route: 048
     Dates: end: 20110810
  13. GASMOTIN [Concomitant]
     Dosage: 15 MG
     Route: 048
     Dates: end: 20110810
  14. HALOPERIDOL [Concomitant]
     Dosage: 0.75 MG
     Route: 048
     Dates: end: 20110810
  15. PRADAXA [Suspect]
     Indication: ATRIAL FIBRILLATION
     Dosage: 220 MG
     Route: 048
     Dates: end: 20110810

REACTIONS (3)
  - MELAENA [None]
  - EPILEPTIC PSYCHOSIS [None]
  - COLITIS [None]
